FAERS Safety Report 20328772 (Version 1)
Quarter: 2022Q1

REPORT INFORMATION
  Report Type: Spontaneous
  Country: NL (occurrence: NL)
  Receive Date: 20220112
  Receipt Date: 20220112
  Transmission Date: 20220424
  Serious: Yes (Hospitalization, Other)
  Sender: FDA-Public Use
  Company Number: NL-AZURITY PHARMACEUTICALS, INC.-NL-2022ARB000028

PATIENT

DRUGS (1)
  1. TOPIRAMATE [Suspect]
     Active Substance: TOPIRAMATE
     Indication: Seizure
     Dosage: 2500 MG, BID
     Route: 045

REACTIONS (2)
  - Toxicity to various agents [Recovered/Resolved]
  - Incorrect dose administered [Unknown]
